FAERS Safety Report 10066917 (Version 2)
Quarter: 2014Q2

REPORT INFORMATION
  Report Type: Spontaneous
  Country: US (occurrence: CA)
  Receive Date: 20140409
  Receipt Date: 20140521
  Transmission Date: 20141212
  Serious: Yes (Other)
  Sender: FDA-Public Use
  Company Number: 2013SP006681

PATIENT
  Age: 64 Year
  Sex: Male

DRUGS (10)
  1. METHOTREXATE [Suspect]
     Indication: PRODUCT USED FOR UNKNOWN INDICATION
     Route: 058
     Dates: start: 2005
  2. ENBREL [Suspect]
     Indication: RHEUMATOID ARTHRITIS
     Route: 058
     Dates: start: 20130128, end: 201312
  3. ENBREL [Suspect]
     Indication: PSORIATIC ARTHROPATHY
     Route: 058
     Dates: start: 20130128, end: 201312
  4. INDOCID /00003801/ [Concomitant]
  5. FOLIC ACID [Concomitant]
     Dates: start: 2005
  6. ALTACE [Concomitant]
  7. NORVASC [Concomitant]
  8. LOPRESSOR [Concomitant]
  9. GLUCOPHAGE [Concomitant]
  10. HYDRODIURIL [Concomitant]

REACTIONS (8)
  - Hepatic cyst [Not Recovered/Not Resolved]
  - Hepatic pain [Not Recovered/Not Resolved]
  - Chest pain [Not Recovered/Not Resolved]
  - Constipation [Not Recovered/Not Resolved]
  - Asthenia [Not Recovered/Not Resolved]
  - Dyspnoea [Not Recovered/Not Resolved]
  - Abdominal distension [Not Recovered/Not Resolved]
  - Abdominal pain [Recovered/Resolved]
